FAERS Safety Report 8967728 (Version 1)
Quarter: 2012Q4

REPORT INFORMATION
  Report Type: Spontaneous
  Country: GB (occurrence: None)
  Receive Date: 20121210
  Receipt Date: 20121210
  Transmission Date: 20130627
  Serious: Yes (Other)
  Sender: FDA-Public Use
  Company Number: COL_12636_2012

PATIENT
  Sex: Female

DRUGS (1)
  1. HYDROGEN PEROXIDE [Suspect]
     Indication: DENTAL DISORDER PROPHYLAXIS
     Route: 048
     Dates: start: 20121009, end: 20121009

REACTIONS (6)
  - Paraesthesia [None]
  - Oedema mouth [None]
  - Hypoaesthesia [None]
  - Lip blister [None]
  - Ocular hyperaemia [None]
  - Hypoaesthesia oral [None]
